FAERS Safety Report 8576847-7 (Version None)
Quarter: 2012Q3

REPORT INFORMATION
  Report Type: 
  Country: None (occurrence: None)
  Receive Date: 20120807
  Receipt Date: 20120801
  Transmission Date: 20120928
  Serious: No
  Sender: FDA-Public Use
  Company Number: FR-PFIZER INC-FR-WYE-G06716610

PATIENT

DRUGS (1)
  1. IBUPROFEN + PSEUDOEPHEDRINE HCL [Suspect]
     Dosage: OVERDOSE AMOUNT:SEVERAL TABLETS
     Route: 048
     Dates: start: 20100922, end: 20100922

REACTIONS (4)
  - ACCIDENTAL OVERDOSE [None]
  - ACCIDENTAL DRUG INTAKE BY CHILD [None]
  - DIZZINESS [None]
  - VOMITING [None]
